FAERS Safety Report 20460953 (Version 1)
Quarter: 2022Q1

REPORT INFORMATION
  Report Type: Spontaneous
  Country: US (occurrence: US)
  Receive Date: 20220211
  Receipt Date: 20220211
  Transmission Date: 20220423
  Serious: No
  Sender: FDA-Public Use
  Company Number: US-PERRIGO-21US011849

PATIENT
  Sex: Male

DRUGS (2)
  1. LOPERAMIDE HYDROCHLORIDE [Suspect]
     Active Substance: LOPERAMIDE HYDROCHLORIDE
     Indication: Diarrhoea
     Dosage: 2 MG, SINGLE
     Route: 048
     Dates: start: 20210812, end: 20210812
  2. LOPERAMIDE HYDROCHLORIDE [Suspect]
     Active Substance: LOPERAMIDE HYDROCHLORIDE
     Dosage: 2 MG, TWICE WITHIN 30 MINUTES
     Route: 048
     Dates: start: 20210813, end: 20210813

REACTIONS (3)
  - Abdominal pain [Unknown]
  - Constipation [Unknown]
  - Intentional product use issue [Recovered/Resolved]

NARRATIVE: CASE EVENT DATE: 20210812
